FAERS Safety Report 16997990 (Version 2)
Quarter: 2019Q4

REPORT INFORMATION
  Report Type: Spontaneous
  Country: US (occurrence: US)
  Receive Date: 20191106
  Receipt Date: 20191114
  Transmission Date: 20200122
  Serious: Yes (Hospitalization, Other)
  Sender: FDA-Public Use
  Company Number: US-TEVA-2019-US-1132075

PATIENT
  Age: 45 Year
  Sex: Male

DRUGS (12)
  1. SIMVASTATIN. [Concomitant]
     Active Substance: SIMVASTATIN
     Route: 065
  2. GLIMEPIRIDE. [Concomitant]
     Active Substance: GLIMEPIRIDE
     Dosage: EVERY MORNING
     Route: 065
  3. MAGNESIUM SULFATE. [Concomitant]
     Active Substance: MAGNESIUM SULFATE
     Indication: HYPOMAGNESAEMIA
     Route: 042
  4. CARVEDILOL. [Concomitant]
     Active Substance: CARVEDILOL
     Route: 065
  5. EZETIMIBE. [Concomitant]
     Active Substance: EZETIMIBE
     Route: 065
  6. AMILORIDE [Concomitant]
     Active Substance: AMILORIDE
     Dosage: THREE TIMES A DAY
     Route: 065
  7. MAGNESIUM LACTATE [Concomitant]
     Active Substance: MAGNESIUM LACTATE
     Indication: HYPOMAGNESAEMIA
     Route: 048
  8. FUROSEMIDE. [Suspect]
     Active Substance: FUROSEMIDE
     Indication: HYPERTENSION
     Route: 065
  9. ASPIRIN. [Concomitant]
     Active Substance: ASPIRIN
     Route: 065
  10. TRIAMTERENE/HYDROCHLOROTHIAZIDE [Suspect]
     Active Substance: HYDROCHLOROTHIAZIDE\TRIAMTERENE
     Indication: HYPERTENSION
     Route: 065
  11. AMLODIPINE [Concomitant]
     Active Substance: AMLODIPINE BESYLATE
     Route: 065
  12. METFORMIN [Concomitant]
     Active Substance: METFORMIN HYDROCHLORIDE
     Route: 065

REACTIONS (5)
  - Osteopenia [Unknown]
  - Hypokalaemia [Recovered/Resolved]
  - Vascular calcification [Unknown]
  - Hypomagnesaemia [Unknown]
  - Hyperparathyroidism [Unknown]
